FAERS Safety Report 5194479-8 (Version None)
Quarter: 2006Q4

REPORT INFORMATION
  Report Type: 
  Country: None (occurrence: None)
  Receive Date: 20061220
  Receipt Date: 20061205
  Transmission Date: 20070319
  Serious: Yes (Hospitalization)
  Sender: FDA-Public Use
  Company Number: DK-GDP-0613914

PATIENT
  Age: 65 Year
  Sex: Male

DRUGS (1)
  1. METVIX (METHYL AMINOLEVULINATE HYDRPOCHLORIDE) [Suspect]
     Indication: ACTINIC KERATOSIS
     Dosage: 1 APP ONCE
     Route: 061
     Dates: start: 20061005, end: 20061005

REACTIONS (1)
  - DERMATITIS CONTACT [None]
